FAERS Safety Report 17278874 (Version 3)
Quarter: 2020Q1

REPORT INFORMATION
  Report Type: Spontaneous
  Country: US (occurrence: US)
  Receive Date: 20200116
  Receipt Date: 20200305
  Transmission Date: 20200409
  Serious: Yes (Other)
  Sender: FDA-Public Use
  Company Number: US-VIFOR (INTERNATIONAL) INC.-VIT-2020-00415

PATIENT
  Age: 79 Year
  Sex: Male

DRUGS (2)
  1. VELTASSA [Suspect]
     Active Substance: PATIROMER
     Route: 048
     Dates: start: 20190912
  2. VELTASSA [Suspect]
     Active Substance: PATIROMER
     Indication: HYPERKALAEMIA
     Route: 048
     Dates: start: 201909

REACTIONS (5)
  - Abdominal discomfort [Unknown]
  - Product dose omission [Unknown]
  - Swelling [Unknown]
  - Joint dislocation [Unknown]
  - Nausea [Unknown]

NARRATIVE: CASE EVENT DATE: 201912
